FAERS Safety Report 10759659 (Version 2)
Quarter: 2015Q1

REPORT INFORMATION
  Report Type: Spontaneous
  Country: TH (occurrence: TH)
  Receive Date: 20150203
  Receipt Date: 20150228
  Transmission Date: 20150721
  Serious: Yes (Other)
  Sender: FDA-Public Use
  Company Number: PHHY2015TH010848

PATIENT
  Sex: Female

DRUGS (1)
  1. GILENYA [Suspect]
     Active Substance: FINGOLIMOD HYDROCHLORIDE
     Indication: RELAPSING-REMITTING MULTIPLE SCLEROSIS
     Dosage: 0.5 MG, QD
     Route: 048
     Dates: start: 201409, end: 20150127

REACTIONS (5)
  - Rash erythematous [Unknown]
  - Vasculitis [Recovered/Resolved]
  - Purpura [Unknown]
  - Hypersensitivity vasculitis [Not Recovered/Not Resolved]
  - Vasculitic rash [Unknown]

NARRATIVE: CASE EVENT DATE: 201501
